FAERS Safety Report 4512882-3 (Version None)
Quarter: 2004Q4

REPORT INFORMATION
  Report Type: 
  Country: None (occurrence: None)
  Receive Date: 20041118
  Receipt Date: 20041118
  Transmission Date: 20050328
  Serious: Yes (Other)
  Sender: FDA-Public Use
  Company Number: None

PATIENT

DRUGS (1)
  1. CATAPRES-TTS-2 [Suspect]
     Indication: HYPERTENSION
     Dosage: 1 PATCH            WEEK       TRANSDERMAL
     Route: 062
     Dates: start: 20041031, end: 20041114

REACTIONS (3)
  - BLOOD PRESSURE INCREASED [None]
  - DRUG EFFECT DECREASED [None]
  - PHARMACEUTICAL PRODUCT COMPLAINT [None]
